FAERS Safety Report 9932686 (Version 1)
Quarter: 2014Q1

REPORT INFORMATION
  Report Type: Spontaneous
  Country: US (occurrence: US)
  Receive Date: 20140228
  Receipt Date: 20140228
  Transmission Date: 20141002
  Serious: No
  Sender: FDA-Public Use
  Company Number: US-GLAXOSMITHKLINE-A1022683A

PATIENT
  Sex: Female

DRUGS (11)
  1. IMITREX [Suspect]
     Indication: TENSION HEADACHE
     Route: 058
  2. BIRTH CONTROL PILLS [Concomitant]
  3. ALLERGY MEDICATION [Concomitant]
  4. FENTANYL PATCH [Concomitant]
  5. TIZANIDINE [Concomitant]
  6. ALPRAZOLAM [Concomitant]
  7. HYDROCODONE [Concomitant]
  8. TRI CYCLEN [Concomitant]
  9. PEPTO BISMOL [Concomitant]
  10. MELOXICAM [Concomitant]
  11. VENLAFAXINE [Concomitant]

REACTIONS (12)
  - Drug hypersensitivity [Unknown]
  - Injection site erythema [Unknown]
  - Injection site swelling [Unknown]
  - Tremor [Unknown]
  - Palpitations [Unknown]
  - Burning sensation [Unknown]
  - Paraesthesia [Unknown]
  - Crying [Unknown]
  - Throat tightness [Unknown]
  - Muscle tightness [Unknown]
  - Contusion [Unknown]
  - Product quality issue [Unknown]
